FAERS Safety Report 19757483 (Version 4)
Quarter: 2021Q3

REPORT INFORMATION
  Report Type: Spontaneous
  Country: US (occurrence: US)
  Receive Date: 20210827
  Receipt Date: 20210928
  Transmission Date: 20211014
  Serious: Yes (Other)
  Sender: FDA-Public Use
  Company Number: US-ALLERGAN-2130394US

PATIENT
  Sex: Female

DRUGS (1)
  1. ESTRADIOL VAGINAL CREAM USP 0.01% [Suspect]
     Active Substance: ESTRADIOL
     Indication: ATROPHIC VULVOVAGINITIS
     Dosage: 2 G, Q WEEK
     Dates: start: 2011

REACTIONS (7)
  - Blood urine present [Unknown]
  - Gastric ulcer [Unknown]
  - Root canal infection [Unknown]
  - Oral herpes [Recovered/Resolved]
  - Herpes zoster [Recovering/Resolving]
  - Urinary tract infection [Unknown]
  - Tooth disorder [Recovered/Resolved]

NARRATIVE: CASE EVENT DATE: 202008
